FAERS Safety Report 22252834 (Version 2)
Quarter: 2023Q2

REPORT INFORMATION
  Report Type: Spontaneous
  Country: NO (occurrence: NO)
  Receive Date: 20230426
  Receipt Date: 20230613
  Transmission Date: 20230721
  Serious: Yes (Other)
  Sender: FDA-Public Use
  Company Number: NO-ORGANON-O2304NOR002282

PATIENT
  Age: 36 Year
  Sex: Female

DRUGS (1)
  1. NEXPLANON [Suspect]
     Active Substance: ETONOGESTREL
     Dosage: 1 IMPLANT
     Route: 059
     Dates: start: 202005

REACTIONS (4)
  - Pregnancy with implant contraceptive [Recovered/Resolved]
  - Abortion induced [Unknown]
  - Unintended pregnancy [Recovered/Resolved]
  - Vaginal haemorrhage [Unknown]

NARRATIVE: CASE EVENT DATE: 20230101
